FAERS Safety Report 5914171-9 (Version None)
Quarter: 2008Q4

REPORT INFORMATION
  Report Type: 
  Country: None (occurrence: None)
  Receive Date: 20081009
  Receipt Date: 20080930
  Transmission Date: 20090506
  Serious: Yes (Hospitalization, Other)
  Sender: FDA-Public Use
  Company Number: GB-PFIZER INC-2008083835

PATIENT
  Age: 56 Year
  Sex: Female
  Weight: 68 kg

DRUGS (5)
  1. CHANTIX [Suspect]
     Indication: SMOKING CESSATION THERAPY
     Dosage: TEXT:1MG
     Route: 048
     Dates: start: 20080520, end: 20080818
  2. SALBUTAMOL [Concomitant]
     Route: 055
  3. SERETIDE [Concomitant]
     Route: 055
  4. THEOPHYLLINE [Concomitant]
     Route: 048
  5. TIOTROPIUM BROMIDE [Concomitant]
     Route: 055

REACTIONS (1)
  - SUPRAVENTRICULAR TACHYCARDIA [None]
